FAERS Safety Report 5563388-4 (Version None)
Quarter: 2007Q4

REPORT INFORMATION
  Report Type: 
  Country: None (occurrence: None)
  Receive Date: 20071217
  Receipt Date: 20070501
  Transmission Date: 20080405
  Serious: No
  Sender: FDA-Public Use
  Company Number: US-ASTRAZENECA-2007UW09312

PATIENT
  Age: 82 Year
  Sex: Female
  Weight: 54.4 kg

DRUGS (5)
  1. CRESTOR [Suspect]
     Route: 048
     Dates: start: 20070401
  2. PREDNISONE [Concomitant]
     Indication: MYALGIA
  3. VESLCARE CALCIUM [Concomitant]
  4. ASPIRIN [Concomitant]
  5. FOSAMAX [Concomitant]

REACTIONS (1)
  - POLLAKIURIA [None]
